FAERS Safety Report 17958805 (Version 1)
Quarter: 2020Q2

REPORT INFORMATION
  Report Type: Report from Study
  Country: FR (occurrence: FR)
  Receive Date: 20200629
  Receipt Date: 20200629
  Transmission Date: 20200714
  Serious: Yes (Hospitalization)
  Sender: FDA-Public Use
  Company Number: FR-MYLANLABS-2020M1059774

PATIENT
  Age: 29 Year
  Sex: Male

DRUGS (5)
  1. AZITHROMYCIN ANHYDROUS. [Interacting]
     Active Substance: AZITHROMYCIN ANHYDROUS
     Indication: PNEUMONIA LEGIONELLA
     Dosage: 500 MILLIGRAM, QD
     Route: 065
  2. SPIRAMYCIN [Suspect]
     Active Substance: SPIRAMYCIN
     Indication: PNEUMONIA LEGIONELLA
     Dosage: SPIRAMYCIN 3 MILLIONS OF INTERNATIONA...
     Route: 065
  3. RIFAMPICIN [Interacting]
     Active Substance: RIFAMPIN
     Indication: PNEUMONIA LEGIONELLA
     Route: 065
  4. LEVOFLOXACIN. [Suspect]
     Active Substance: LEVOFLOXACIN
     Indication: PNEUMONIA LEGIONELLA
     Route: 065
  5. LEVOFLOXACIN. [Suspect]
     Active Substance: LEVOFLOXACIN
     Dosage: 500 MILLIGRAM
     Route: 065

REACTIONS (4)
  - Treatment failure [Not Recovered/Not Resolved]
  - Drug interaction [Not Recovered/Not Resolved]
  - Drug level decreased [Not Recovered/Not Resolved]
  - Therapeutic response decreased [Not Recovered/Not Resolved]
